FAERS Safety Report 8338030-X (Version None)
Quarter: 2012Q2

REPORT INFORMATION
  Report Type: 
  Country: None (occurrence: None)
  Receive Date: 20120504
  Receipt Date: 20120501
  Transmission Date: 20120825
  Serious: Yes (Death)
  Sender: FDA-Public Use
  Company Number: US-ABBOTT-12P-163-0931161-00

PATIENT
  Sex: Male
  Weight: 129.39 kg

DRUGS (6)
  1. ANDROGEL [Suspect]
     Indication: HYPOGONADISM
     Dosage: 3 ACTUATIONS DAILY
     Dates: start: 20110926, end: 20120408
  2. ALPRAZOLAM [Concomitant]
     Indication: PRODUCT USED FOR UNKNOWN INDICATION
  3. ANDROGEL [Suspect]
     Indication: HYPOGONADISM
     Dosage: 1 % PRIOR ON MAY 6 2010
     Dates: start: 20100506, end: 20110926
  4. LISINOPRIL [Suspect]
     Indication: HYPERTENSION
     Dates: end: 20110101
  5. PRAVASTATIN [Concomitant]
     Indication: HYPERLIPIDAEMIA
  6. IBUPROFEN (ADVIL) [Concomitant]
     Indication: PRODUCT USED FOR UNKNOWN INDICATION

REACTIONS (3)
  - HYPERTENSION [None]
  - DEATH [None]
  - WEIGHT INCREASED [None]
